FAERS Safety Report 5083644-6 (Version None)
Quarter: 2006Q3

REPORT INFORMATION
  Report Type: 
  Country: None (occurrence: None)
  Receive Date: 20060816
  Receipt Date: 20060731
  Transmission Date: 20061208
  Serious: Yes (Other)
  Sender: FDA-Public Use
  Company Number: ABWIS-06-0312

PATIENT
  Age: 69 Year
  Sex: Female
  Weight: 78.9259 kg

DRUGS (7)
  1. ABRAXANE [Suspect]
     Indication: BREAST CANCER METASTATIC
     Dosage: SEE IMAGE
     Route: 041
     Dates: start: 20060508
  2. ABRAXANE [Suspect]
     Indication: BREAST CANCER METASTATIC
     Dosage: SEE IMAGE
     Route: 041
     Dates: start: 20060713
  3. ABRAXANE [Suspect]
     Indication: BREAST CANCER METASTATIC
     Dosage: SEE IMAGE
     Route: 041
     Dates: start: 20060803
  4. ZOMETA [Concomitant]
  5. COMPAZINE [Concomitant]
  6. TOPROL-XL [Concomitant]
  7. ASPIRIN [Concomitant]

REACTIONS (7)
  - ALANINE AMINOTRANSFERASE INCREASED [None]
  - ANAEMIA [None]
  - ANOREXIA [None]
  - ASPARTATE AMINOTRANSFERASE INCREASED [None]
  - BLOOD ALKALINE PHOSPHATASE INCREASED [None]
  - NEUTROPENIA [None]
  - WEIGHT DECREASED [None]
